FAERS Safety Report 23259425 (Version 1)
Quarter: 2023Q4

REPORT INFORMATION
  Report Type: Spontaneous
  Country: US (occurrence: None)
  Receive Date: 20231204
  Receipt Date: 20231204
  Transmission Date: 20240109
  Serious: Yes (Hospitalization)
  Sender: FDA-Public Use
  Company Number: None

PATIENT
  Age: 51 Year
  Sex: Male

DRUGS (5)
  1. DIAZEPAM [Suspect]
     Active Substance: DIAZEPAM
  2. BUPRENORPHINE [Suspect]
     Active Substance: BUPRENORPHINE
  3. TOPAMAX [Suspect]
     Active Substance: TOPIRAMATE
  4. GABAPENTIN [Suspect]
     Active Substance: GABAPENTIN
  5. TRAZODONE [Suspect]
     Active Substance: TRAZODONE HYDROCHLORIDE

REACTIONS (2)
  - Sedation complication [None]
  - Therapy interrupted [None]

NARRATIVE: CASE EVENT DATE: 20221021
